FAERS Safety Report 18213342 (Version 1)
Quarter: 2020Q3

REPORT INFORMATION
  Report Type: Spontaneous
  Country: FR (occurrence: FR)
  Receive Date: 20200831
  Receipt Date: 20200831
  Transmission Date: 20201103
  Serious: Yes (Life-Threatening, Hospitalization)
  Sender: FDA-Public Use
  Company Number: FR-ROCHE-2668199

PATIENT
  Age: 60 Year
  Sex: Male
  Weight: 90 kg

DRUGS (10)
  1. ROCEPHINE [Concomitant]
     Active Substance: CEFTRIAXONE SODIUM
     Dates: start: 20170918
  2. DIFFU K [Concomitant]
     Active Substance: POTASSIUM CHLORIDE
     Route: 048
  3. CALTRATE [Concomitant]
     Active Substance: CALCIUM CARBONATE
     Dosage: 2 CP LE MATIN, 1 CP LE SOIR
     Route: 048
  4. FOSAMAX [Concomitant]
     Active Substance: ALENDRONATE SODIUM
     Route: 048
  5. RIVOTRIL [Suspect]
     Active Substance: CLONAZEPAM
     Indication: MYOCLONUS
     Route: 065
     Dates: start: 20170918, end: 20170918
  6. CORTANCYL [Concomitant]
     Active Substance: PREDNISONE
     Route: 048
  7. EVEROLIMUS. [Concomitant]
     Active Substance: EVEROLIMUS
     Route: 048
  8. EUPANTOL [Concomitant]
     Active Substance: PANTOPRAZOLE SODIUM
     Route: 048
  9. TEMERIT [Concomitant]
     Active Substance: NEBIVOLOL
     Route: 048
  10. LASILIX [Concomitant]
     Active Substance: FUROSEMIDE
     Route: 048

REACTIONS (1)
  - Hypercapnic coma [Recovered/Resolved]

NARRATIVE: CASE EVENT DATE: 20170918
